FAERS Safety Report 13355408 (Version 1)
Quarter: 2017Q1

REPORT INFORMATION
  Report Type: Spontaneous
  Country: GB (occurrence: GB)
  Receive Date: 20170321
  Receipt Date: 20170321
  Transmission Date: 20170429
  Serious: Yes (Other)
  Sender: FDA-Public Use
  Company Number: GB-MYLANLABS-2017M1017643

PATIENT

DRUGS (9)
  1. FENTANYL. [Suspect]
     Active Substance: FENTANYL
     Dosage: 100MICROG; 50MICROG WAS ADDED IN DEC2010
     Route: 062
  2. TRAMADOL. [Concomitant]
     Active Substance: TRAMADOL
     Indication: BACK PAIN
     Route: 065
  3. MIRTAZAPINE. [Concomitant]
     Active Substance: MIRTAZAPINE
     Indication: BACK PAIN
     Dosage: 15 MG
     Route: 065
  4. OXYCODONE [Concomitant]
     Active Substance: OXYCODONE
     Indication: BACK PAIN
     Route: 065
  5. FENTANYL. [Suspect]
     Active Substance: FENTANYL
     Indication: BACK PAIN
     Dosage: 14 PATCHES OF 100MICROG
     Route: 062
  6. MIRTAZAPINE. [Concomitant]
     Active Substance: MIRTAZAPINE
     Dosage: 2 TABLETS OF 45 MG
     Route: 065
  7. FENTANYL. [Suspect]
     Active Substance: FENTANYL
     Dosage: 25MICROG; INCREASED TO 100MICROG WITHIN 7 WEEKS
     Route: 062
     Dates: start: 200710
  8. FENTANYL. [Suspect]
     Active Substance: FENTANYL
     Dosage: 50MICROG WAS ADDED IN DEC2010
     Route: 062
     Dates: start: 201012
  9. ORAMORPH [Concomitant]
     Active Substance: MORPHINE SULFATE
     Indication: BACK PAIN
     Route: 048

REACTIONS (3)
  - Suicide attempt [Recovered/Resolved]
  - Sedation [Recovered/Resolved]
  - Intentional overdose [Recovered/Resolved]
